FAERS Safety Report 5167305-0 (Version None)
Quarter: 2006Q4

REPORT INFORMATION
  Report Type: 
  Country: None (occurrence: None)
  Receive Date: 20061130
  Receipt Date: 20061120
  Transmission Date: 20070319
  Serious: Yes (Hospitalization, Other)
  Sender: FDA-Public Use
  Company Number: HQWYE995205AUG04

PATIENT
  Age: 2 Year
  Sex: Female
  Weight: 10.3 kg

DRUGS (20)
  1. RAPAMUNE [Suspect]
     Indication: IMMUNOSUPPRESSANT DRUG THERAPY
     Dosage: 0.25 MG 2X PER 1 DAY
     Dates: start: 20020507
  2. MINOXIDIL [Suspect]
     Indication: HYPERTENSION
  3. LASIX [Concomitant]
  4. PRILOSEC [Concomitant]
  5. ZYRTEC [Concomitant]
  6. PROGRAF [Concomitant]
  7. BACTRIM DS [Concomitant]
  8. NORVASC [Concomitant]
  9. LIPITOR [Concomitant]
  10. LACTOBACILLUS ACIDOPHILUS (LACTOBACILLUS ACIDOPHILUS) [Concomitant]
  11. PREDNISONE TAB [Concomitant]
  12. NIFEREX (POLYSACCHARIDE-IRON COMPLEX) [Concomitant]
  13. REGLAN [Concomitant]
  14. GLYCERIN (GLYCEROL) [Concomitant]
  15. LACTULOSE [Concomitant]
  16. TYLENOL [Concomitant]
  17. ZOFRAN [Concomitant]
  18. BENADRYL [Concomitant]
  19. BACTROBAN (MUPIROCIN) [Concomitant]
  20. MIRAPEX [Concomitant]

REACTIONS (9)
  - DEHYDRATION [None]
  - DILATATION ATRIAL [None]
  - NAUSEA [None]
  - ORAL INTAKE REDUCED [None]
  - PERICARDIAL EFFUSION [None]
  - PLEURAL EFFUSION [None]
  - UPPER RESPIRATORY TRACT INFECTION [None]
  - VIRAL INFECTION [None]
  - VOMITING [None]
